FAERS Safety Report 7437981-8 (Version None)
Quarter: 2011Q2

REPORT INFORMATION
  Report Type: 
  Country: None (occurrence: None)
  Receive Date: 20110426
  Receipt Date: 20110415
  Transmission Date: 20111010
  Serious: Yes (Death)
  Sender: FDA-Public Use
  Company Number: JP-PFIZER INC-2011077241

PATIENT
  Age: 69 Year
  Sex: Male
  Weight: 52 kg

DRUGS (8)
  1. CARBOPLATIN [Suspect]
     Indication: SMALL CELL LUNG CANCER STAGE UNSPECIFIED
     Dosage: 350 MG/BODY (244.8 MG/M2)
     Route: 041
     Dates: start: 20110326, end: 20110326
  2. ALBUMIN HUMAN [Concomitant]
     Indication: SHOCK
     Dosage: 250 ML, UNK
     Route: 041
     Dates: start: 20110330, end: 20110330
  3. MEROPENEM TRIHYDRATE [Concomitant]
     Indication: SEPSIS
     Dosage: 0.5 G, 2X/DAY
     Route: 041
     Dates: start: 20110330, end: 20110331
  4. CAMPTOSAR [Suspect]
     Indication: SMALL CELL LUNG CANCER STAGE UNSPECIFIED
     Dosage: 70 MG/BODY (49 MG/M2)
     Route: 041
     Dates: start: 20110326, end: 20110326
  5. DEXAMETHASONE SODIUM PHOSPHATE [Concomitant]
     Indication: PREMEDICATION
     Dosage: 3.3 MG, UNK
     Route: 041
     Dates: start: 20110326, end: 20110326
  6. ALOXI [Concomitant]
     Indication: PREMEDICATION
     Dosage: 0.75 MG, UNK
     Route: 041
     Dates: start: 20110326, end: 20110326
  7. EMEND [Concomitant]
     Indication: PREMEDICATION
     Dosage: 80 MG, UNK
     Route: 048
     Dates: start: 20110326, end: 20110327
  8. IMMUNE GLOBULIN INTRAVENOUS (HUMAN) [Concomitant]
     Indication: SEPSIS
     Dosage: 0.5 G, 2X/DAY
     Route: 041
     Dates: start: 20110330, end: 20110331

REACTIONS (4)
  - NEUTROPENIA [None]
  - LEUKOPENIA [None]
  - THROMBOCYTOPENIA [None]
  - SEPTIC SHOCK [None]
